FAERS Safety Report 10241749 (Version 1)
Quarter: 2014Q2

REPORT INFORMATION
  Report Type: Report from Study
  Country: US (occurrence: US)
  Receive Date: 20140617
  Receipt Date: 20140617
  Transmission Date: 20141212
  Serious: Yes (Other)
  Sender: FDA-Public Use
  Company Number: US-SA-2014SA076388

PATIENT
  Sex: Female

DRUGS (5)
  1. LANTUS SOLOSTAR [Suspect]
     Indication: DIABETES MELLITUS
     Dosage: 5 OR 6 YEARS?20-25UNITS?30 UNITS?50 UNITS A DAY
     Route: 065
  2. SOLOSTAR [Concomitant]
  3. STARLIX [Concomitant]
  4. GLUCOPHAGE [Concomitant]
  5. METFORMIN [Concomitant]

REACTIONS (5)
  - Brain neoplasm [Unknown]
  - Blindness unilateral [Unknown]
  - Arthritis [Unknown]
  - Hernia [Unknown]
  - Bone disorder [Unknown]
